FAERS Safety Report 11786632 (Version 1)
Quarter: 2015Q4

REPORT INFORMATION
  Report Type: Spontaneous
  Country: GB (occurrence: GB)
  Receive Date: 20151130
  Receipt Date: 20151130
  Transmission Date: 20160305
  Serious: Yes (Other)
  Sender: FDA-Public Use
  Company Number: GB-PFIZER INC-2015405624

PATIENT
  Sex: Male
  Weight: 240 kg

DRUGS (1)
  1. CYKLOKAPRON [Suspect]
     Active Substance: TRANEXAMIC ACID
     Dosage: 1 G, EVERY 6 HOURS (4 G EVERY 24 H)

REACTIONS (2)
  - Renal impairment [Unknown]
  - Duodenal ulcer haemorrhage [Unknown]
